FAERS Safety Report 7438504-X (Version None)
Quarter: 2011Q2

REPORT INFORMATION
  Report Type: 
  Country: None (occurrence: None)
  Receive Date: 20110426
  Receipt Date: 20110415
  Transmission Date: 20111010
  Serious: Yes (Hospitalization)
  Sender: FDA-Public Use
  Company Number: US-SANOFI-AVENTIS-2011SA023639

PATIENT
  Age: 85 Year
  Sex: Male

DRUGS (2)
  1. LANTUS [Suspect]
     Dosage: 20-40 UNITS DAILY
     Route: 058
     Dates: start: 20080101
  2. SOLOSTAR [Suspect]
     Dates: start: 20080101

REACTIONS (1)
  - ARTERIAL OCCLUSIVE DISEASE [None]
